FAERS Safety Report 19876975 (Version 1)
Quarter: 2021Q3

REPORT INFORMATION
  Report Type: Spontaneous
  Country: DE (occurrence: DE)
  Receive Date: 20210924
  Receipt Date: 20210924
  Transmission Date: 20211014
  Serious: Yes (Other)
  Sender: FDA-Public Use
  Company Number: DE-TEVA-2021-DE-1956000

PATIENT
  Age: 0 Year
  Sex: Male

DRUGS (4)
  1. BOOSTRIX POLIO [Concomitant]
     Active Substance: DIPHTHERIA AND TETANUS TOXOIDS AND ACELLULAR PERTUSSIS ADSORBED AND INACTIVATED POLIOVIRUS VACCINE
     Indication: IMMUNISATION
     Dosage: ADDITIONAL INFO : 31.4. ? 31.4. GESTATIONAL WEEK
     Route: 064
     Dates: start: 20201013, end: 20201013
  2. L?THYROXIN [Concomitant]
     Active Substance: LEVOTHYROXINE SODIUM
     Indication: HYPOTHYROIDISM
     Dosage: 50 MICROGRAM DAILY; ADDITIONAL INFO : 7. ? 40.6. GESTATIONAL WEEK
     Route: 064
     Dates: start: 20200424, end: 20201217
  3. DULOXETIN [Suspect]
     Active Substance: DULOXETINE
     Indication: DEPRESSION
     Dosage: 60 MILLIGRAM DAILY; ADDITIONAL INFO : 0. ? 36.1. GESTATIONAL WEEK
     Route: 064
     Dates: start: 20200306, end: 20201114
  4. INFLUSPLIT TETRA [Concomitant]
     Active Substance: INFLUENZA VIRUS VACCINE
     Indication: IMMUNISATION
     Dosage: ADDITIONAL INFO : 29.6. ? 29.6. GESTATIONAL WEEK
     Route: 064
     Dates: start: 20201001, end: 20201001

REACTIONS (2)
  - Foetal exposure during pregnancy [Unknown]
  - Partial seizures [Unknown]

NARRATIVE: CASE EVENT DATE: 20200306
